FAERS Safety Report 6860205-7 (Version None)
Quarter: 2010Q3

REPORT INFORMATION
  Report Type: 
  Country: None (occurrence: None)
  Receive Date: 20100720
  Receipt Date: 20100713
  Transmission Date: 20110219
  Serious: Yes (Other)
  Sender: FDA-Public Use
  Company Number: US-ABBOTT-10P-163-0657329-00

PATIENT
  Sex: Female

DRUGS (3)
  1. HUMIRA [Suspect]
     Indication: PSORIATIC ARTHROPATHY
     Dates: start: 20090801, end: 20091101
  2. HUMIRA [Suspect]
     Dates: start: 20100101, end: 20100401
  3. HUMIRA [Suspect]
     Dates: start: 20100621

REACTIONS (3)
  - BRONCHITIS [None]
  - DYSPAREUNIA [None]
  - EAR INFECTION [None]
